FAERS Safety Report 9363015 (Version 1)
Quarter: 2013Q2

REPORT INFORMATION
  Report Type: Spontaneous
  Country: US (occurrence: None)
  Receive Date: 20130621
  Receipt Date: 20130621
  Transmission Date: 20140414
  Serious: No
  Sender: FDA-Public Use
  Company Number: None

PATIENT
  Age: 49 Year
  Sex: Female
  Weight: 82.1 kg

DRUGS (1)
  1. TYLENOL CODEINE [Suspect]

REACTIONS (2)
  - Rash [None]
  - Wheezing [None]
